FAERS Safety Report 7320711-8 (Version None)
Quarter: 2011Q1

REPORT INFORMATION
  Report Type: 
  Country: None (occurrence: None)
  Receive Date: 20110228
  Receipt Date: 20110225
  Transmission Date: 20110831
  Serious: Yes (Hospitalization)
  Sender: FDA-Public Use
  Company Number: ZA-ROCHE-741996

PATIENT
  Sex: Male
  Weight: 82.1 kg

DRUGS (7)
  1. TOCILIZUMAB [Suspect]
     Route: 042
     Dates: start: 20101214
  2. FOLVITE [Concomitant]
     Dates: start: 20070116
  3. METHOTREXATE [Suspect]
     Route: 065
     Dates: start: 20101214
  4. CRESTOR [Concomitant]
     Dates: start: 20100713
  5. TOCILIZUMAB [Suspect]
     Indication: RHEUMATOID ARTHRITIS
     Dosage: LAST DOSE PRIOR TO SAE: 19 OCTOBER 2010, TOTAL MONTHLY DOSE: 671 MG.
     Route: 042
     Dates: start: 20070116, end: 20101019
  6. METHOTREXATE [Suspect]
     Indication: RHEUMATOID ARTHRITIS
     Dosage: PREVIOUSLY ENROLLED IN WA17824, RANDOMISED TREATEMNT WITH METHOTREXATE
     Route: 065
  7. METHOTREXATE [Suspect]
     Route: 065
     Dates: start: 20070116, end: 20101116

REACTIONS (2)
  - ENCEPHALITIS VIRAL [None]
  - DEAFNESS [None]
